FAERS Safety Report 8585177 (Version 2)
Quarter: 2012Q4

REPORT INFORMATION
  Report Type: 
  Country: EG (occurrence: EG)
  Receive Date: 20120530
  Receipt Date: 20120910
  Transmission Date: 20130627
  Serious: Yes (Death)
  Sender: FDA-Public Use
  Company Number: EG-SANOFI-AVENTIS-2012SA037032

PATIENT
  Age: 56 Year
  Sex: Male

DRUGS (4)
  1. LANTUS [Suspect]
     Indication: TYPE I DIABETES MELLITUS
     Dosage: Dose:10 unit(s)
     Route: 058
     Dates: start: 20100121, end: 20100423
  2. LANTUS [Suspect]
     Indication: TYPE I DIABETES MELLITUS
     Dosage: Dose:12 unit(s)
     Route: 058
     Dates: start: 20100424, end: 20110423
  3. HUMULIN R [Concomitant]
  4. ANALGESICS [Concomitant]

REACTIONS (1)
  - Diabetic foot [Fatal]
